FAERS Safety Report 9520945 (Version 4)
Quarter: 2014Q1

REPORT INFORMATION
  Report Type: Spontaneous
  Country: US (occurrence: US)
  Receive Date: 20130913
  Receipt Date: 20140115
  Transmission Date: 20141002
  Serious: No
  Sender: FDA-Public Use
  Company Number: US-PFIZER INC-2012280244

PATIENT
  Age: 12 Year
  Sex: Male
  Weight: 49.89 kg

DRUGS (10)
  1. GENOTROPIN [Suspect]
     Indication: GROWTH HORMONE DEFICIENCY
     Dosage: 1.8 MG, 6X/WEEK
     Dates: start: 20120227
  2. GENOTROPIN [Suspect]
     Dosage: 2.2 MG, 6X/WEEK
     Dates: start: 20120620
  3. GENOTROPIN [Suspect]
     Dosage: 2.2 MG, 6 DAYS IN A WEEK
     Dates: start: 20121107
  4. GENOTROPIN [Suspect]
     Dosage: UNK, SIX DAYS IN A WEEK
  5. FOCALIN XR [Concomitant]
     Indication: ATTENTION DEFICIT/HYPERACTIVITY DISORDER
     Dosage: 20 MG, DAILY
     Route: 048
     Dates: start: 200701
  6. FOCALIN XR [Concomitant]
     Dosage: 50 MG, 1X/DAY (TWO CAPSULE OF 25MG, ONCE A DAY)
  7. PROPRANOLOL [Concomitant]
     Indication: TREMOR
     Dosage: 20 MG, 1X/DAY
     Route: 048
     Dates: start: 200701
  8. PROPRANOLOL [Concomitant]
     Dosage: 30 MG, 1X/DAY
     Route: 048
     Dates: start: 201206
  9. FLUOXETINE [Concomitant]
     Indication: ANXIETY
     Dosage: 20 MG, DAILY
     Dates: start: 201003
  10. FLUOXETINE [Concomitant]
     Indication: NERVOUSNESS

REACTIONS (2)
  - Injection site haemorrhage [Unknown]
  - Injection site pain [Unknown]
